FAERS Safety Report 7618217-1 (Version None)
Quarter: 2011Q3

REPORT INFORMATION
  Report Type: 
  Country: None (occurrence: None)
  Receive Date: 20110718
  Receipt Date: 20110622
  Transmission Date: 20111222
  Serious: Yes (Hospitalization)
  Sender: FDA-Public Use
  Company Number: US-GLAXOSMITHKLINE-A0936885A

PATIENT
  Age: 67 Year
  Sex: Male
  Weight: 109.1 kg

DRUGS (15)
  1. ALLOPURINOL [Concomitant]
  2. FUROSEMIDE [Concomitant]
  3. POTASSIUM CHLORIDE [Concomitant]
  4. GLUCOPHAGE [Concomitant]
  5. METFORMIN HCL [Concomitant]
  6. ASPIRIN [Concomitant]
  7. AVANDAMET [Suspect]
     Indication: DIABETES MELLITUS
     Route: 048
  8. COREG [Concomitant]
  9. PLAVIX [Concomitant]
  10. AVANDIA [Suspect]
     Indication: DIABETES MELLITUS
     Route: 048
  11. SIMVASTATIN [Concomitant]
  12. INDOMETHACIN [Concomitant]
  13. BENAZEPRIL HYDROCHLORIDE [Concomitant]
  14. LIPITOR [Concomitant]
  15. LISINOPRIL [Concomitant]

REACTIONS (3)
  - ACUTE MYOCARDIAL INFARCTION [None]
  - CARDIAC FAILURE CONGESTIVE [None]
  - CORONARY ARTERY DISEASE [None]
